FAERS Safety Report 16987046 (Version 1)
Quarter: 2019Q4

REPORT INFORMATION
  Report Type: Spontaneous
  Country: JP (occurrence: JP)
  Receive Date: 20191104
  Receipt Date: 20191104
  Transmission Date: 20200122
  Serious: Yes (Other)
  Sender: FDA-Public Use
  Company Number: JP-SA-2019SA303821

PATIENT
  Sex: Male

DRUGS (3)
  1. BETANIS [Suspect]
     Active Substance: MIRABEGRON
     Indication: NOCTURIA
     Dosage: UNK
     Route: 065
  2. TOVIAZ [Suspect]
     Active Substance: FESOTERODINE FUMARATE
     Indication: NOCTURIA
     Dosage: UNK UNK, UNK FREQ AT DUSK
  3. HARNAL [Suspect]
     Active Substance: TAMSULOSIN HYDROCHLORIDE
     Indication: NOCTURIA
     Dosage: UNK
     Route: 065

REACTIONS (2)
  - Urinary retention [Recovering/Resolving]
  - Drug ineffective [Unknown]
